FAERS Safety Report 19133579 (Version 1)
Quarter: 2021Q2

REPORT INFORMATION
  Report Type: Spontaneous
  Country: US (occurrence: US)
  Receive Date: 20210414
  Receipt Date: 20210414
  Transmission Date: 20210717
  Serious: Yes (Hospitalization)
  Sender: FDA-Public Use
  Company Number: None

PATIENT
  Age: 63 Year
  Sex: Female

DRUGS (1)
  1. TEMOZOLOMIDE. [Suspect]
     Active Substance: TEMOZOLOMIDE
     Indication: BRAIN NEOPLASM MALIGNANT
     Route: 048
     Dates: start: 202102

REACTIONS (6)
  - Confusional state [None]
  - Gait inability [None]
  - Feeding disorder [None]
  - Speech disorder [None]
  - Product selection error [None]
  - Incorrect dose administered [None]

NARRATIVE: CASE EVENT DATE: 20210221
